FAERS Safety Report 9168444 (Version 2)
Quarter: 2013Q2

REPORT INFORMATION
  Report Type: Spontaneous
  Country: JP (occurrence: JP)
  Receive Date: 20130318
  Receipt Date: 20130417
  Transmission Date: 20140414
  Serious: Yes (Other)
  Sender: FDA-Public Use
  Company Number: JP-SANOFI-AVENTIS-2013SA022818

PATIENT
  Age: 91 Year
  Sex: Female

DRUGS (6)
  1. PLAVIX [Suspect]
     Indication: PROPHYLAXIS
     Route: 048
     Dates: start: 200802, end: 200802
  2. PLAVIX [Suspect]
     Indication: PROPHYLAXIS
     Route: 048
     Dates: start: 200902, end: 20130216
  3. PLAVIX [Suspect]
     Indication: PROPHYLAXIS
     Route: 048
     Dates: start: 20130217, end: 20130302
  4. ATELEC [Concomitant]
     Indication: HYPERTENSION
     Dates: start: 200802
  5. PLETAAL [Concomitant]
     Indication: CEREBRAL INFARCTION
     Route: 048
     Dates: start: 20130217, end: 20130223
  6. PLETAAL [Concomitant]
     Indication: CEREBRAL INFARCTION
     Route: 065
     Dates: start: 2008, end: 200902

REACTIONS (4)
  - Tongue paralysis [Unknown]
  - Glossitis [Recovering/Resolving]
  - Tongue discolouration [Unknown]
  - Tongue discolouration [Unknown]
